FAERS Safety Report 22863121 (Version 2)
Quarter: 2025Q2

REPORT INFORMATION
  Report Type: Spontaneous
  Country: US (occurrence: US)
  Receive Date: 20230824
  Receipt Date: 20250425
  Transmission Date: 20250717
  Serious: Yes (Hospitalization, Other)
  Sender: MERCK SHARP & DOHME LLC
  Company Number: US-009507513-2308USA006824

PATIENT
  Age: 70 Year
  Sex: Male

DRUGS (1)
  1. PEMBROLIZUMAB [Suspect]
     Active Substance: PEMBROLIZUMAB
     Indication: Oesophageal squamous cell carcinoma
     Route: 065

REACTIONS (4)
  - Pouchitis [Recovering/Resolving]
  - Immune-mediated lung disease [Unknown]
  - Immune-mediated enterocolitis [Recovered/Resolved]
  - Toxicity to various agents [Unknown]
